FAERS Safety Report 5314177-7 (Version None)
Quarter: 2007Q2

REPORT INFORMATION
  Report Type: 
  Country: None (occurrence: None)
  Receive Date: 20070427
  Receipt Date: 20070411
  Transmission Date: 20071010
  Serious: Yes (Other)
  Sender: FDA-Public Use
  Company Number: FSC_0090_2007

PATIENT
  Age: 65 Year
  Sex: Female
  Weight: 78 kg

DRUGS (5)
  1. VERAPAMIL [Suspect]
     Indication: ARRHYTHMIA
     Dosage: (80 MG 1X/12 HOURS ORAL)
     Route: 048
     Dates: start: 20070101
  2. ENALAPRIL [Concomitant]
  3. GINKO BILOBA [Concomitant]
  4. CLONAZEPAM [Concomitant]
  5. FOLIC ACID [Concomitant]

REACTIONS (4)
  - ARRHYTHMIA [None]
  - CONDITION AGGRAVATED [None]
  - DRUG INEFFECTIVE [None]
  - PARAESTHESIA [None]
